FAERS Safety Report 8802710 (Version 2)
Quarter: 2012Q4

REPORT INFORMATION
  Report Type: 
  Country: US (occurrence: US)
  Receive Date: 20120921
  Receipt Date: 20121210
  Transmission Date: 20130627
  Serious: Yes (Other)
  Sender: FDA-Public Use
  Company Number: US-PFIZER INC-2012232638

PATIENT
  Age: 59 Year
  Sex: Female

DRUGS (15)
  1. LYRICA [Suspect]
     Indication: SEIZURES
     Dosage: 75 mg, 2x/day
  2. LYRICA [Suspect]
     Indication: NEUROPATHY
     Dosage: 75 mg, qd
     Route: 048
     Dates: start: 200906
  3. DILANTIN [Suspect]
     Indication: SEIZURES
     Dosage: 500 mg, Daily (five capsule daily two in morning and three in evening)
  4. DILANTIN [Suspect]
     Dosage: 200 mg, 2x/day (two in morning and two in evening)
  5. DILANTIN [Suspect]
     Dosage: UNK
  6. DILANTIN [Suspect]
     Dosage: 100 mg, 3 po qAM 2 po qhs
     Route: 048
     Dates: start: 200707
  7. LAMICTAL [Suspect]
     Indication: SEIZURES
     Dosage: 200 mg, 2x/day (one in morning and one in evening)
  8. LAMICTAL [Suspect]
     Dosage: UNK, (two and half tablets, one tablet in morning and one and half tablet in evening)
  9. LAMICTAL [Suspect]
     Dosage: one tablet in morning and one and half tablet in evening
  10. LAMICTAL [Suspect]
     Dosage: 100 mg, 2 po q AM, 3 po qhs
     Route: 048
     Dates: start: 200707
  11. PHENOBARBITAL [Suspect]
     Indication: SEIZURES
     Dosage: UNK, daily
  12. LEVOTHYROXINE SODIUM [Concomitant]
     Dosage: 100 ug, daily
  13. LISINOPRIL [Concomitant]
     Dosage: one tablet at an unknown dose daily
  14. PRAVASTATIN [Concomitant]
     Dosage: 200 mg, daily (at bedtime)
  15. AMLODIPINE [Concomitant]
     Dosage: UNK, daily (one tablet daily at bedtime)

REACTIONS (1)
  - Drug ineffective [Unknown]
